FAERS Safety Report 8421960-8 (Version None)
Quarter: 2012Q2

REPORT INFORMATION
  Report Type: 
  Country: None (occurrence: None)
  Receive Date: 20120323
  Receipt Date: 20111215
  Transmission Date: 20120825
  Serious: Yes (Other)
  Sender: FDA-Public Use
  Company Number: 163-21880-11122072

PATIENT
  Age: 89 Year
  Sex: Female
  Weight: 62.5964 kg

DRUGS (6)
  1. AMLODIPINE [Concomitant]
  2. HYDROCHLOROTHIAZIDE [Concomitant]
  3. PAXIL [Concomitant]
  4. ASPIRIN [Concomitant]
  5. HYDROCODONE BITARTRATE [Concomitant]
  6. REVLIMID [Suspect]
     Indication: MULTIPLE MYELOMA
     Dosage: 5 MG, 1 IN 1 D, PO
     Route: 048
     Dates: start: 20111020

REACTIONS (1)
  - THROMBOCYTOPENIA [None]
